FAERS Safety Report 10220922 (Version 2)
Quarter: 2014Q2

REPORT INFORMATION
  Report Type: Spontaneous
  Country: IT (occurrence: IT)
  Receive Date: 20140606
  Receipt Date: 20140620
  Transmission Date: 20141212
  Serious: Yes (Hospitalization)
  Sender: FDA-Public Use
  Company Number: IT-ELI_LILLY_AND_COMPANY-IT201405009799

PATIENT
  Age: 31 Year
  Sex: Female

DRUGS (8)
  1. OLANZAPINE [Suspect]
     Indication: PRODUCT USED FOR UNKNOWN INDICATION
     Dosage: 1 DF, SINGLE
     Route: 048
     Dates: start: 20140222, end: 20140222
  2. ARIPIPRAZOLE [Suspect]
     Indication: PRODUCT USED FOR UNKNOWN INDICATION
     Dosage: 5 MG, SINGLE
     Route: 048
     Dates: start: 20140222, end: 20140222
  3. RISPERIDONE [Suspect]
     Indication: PRODUCT USED FOR UNKNOWN INDICATION
     Dosage: 1 MG, SINGLE
     Route: 048
     Dates: start: 20140222, end: 20140222
  4. QUETIAPINE FUMARATE [Concomitant]
     Dosage: 25 MG, UNKNOWN
     Route: 048
  5. DEPAKIN [Concomitant]
     Dosage: 200 MG, UNK
     Route: 048
  6. LAMOTRIGINE [Concomitant]
     Dosage: 25 MG, UNK
     Route: 048
  7. PROZIN /00011902/ [Concomitant]
     Dosage: 40 MG, UNKNOWN
     Route: 048
  8. PROMETHAZINE [Concomitant]
     Dosage: 40 MG, UNKNOWN
     Route: 048

REACTIONS (3)
  - Intentional self-injury [Recovering/Resolving]
  - Drug abuse [Recovering/Resolving]
  - Sopor [Recovering/Resolving]
